FAERS Safety Report 8834863 (Version 1)
Quarter: 2012Q4

REPORT INFORMATION
  Report Type: Spontaneous
  Country: US (occurrence: None)
  Receive Date: 20121009
  Receipt Date: 20121009
  Transmission Date: 20130627
  Serious: Yes (Other)
  Sender: FDA-Public Use
  Company Number: NGX_01395_2012

PATIENT
  Age: 40 Year

DRUGS (1)
  1. QUTENZA [Suspect]
     Indication: NEUROPATHY PERIPHERAL
     Dosage: DF
     Dates: start: 201204

REACTIONS (3)
  - Application site pain [None]
  - Complex regional pain syndrome [None]
  - Condition aggravated [None]
